FAERS Safety Report 25187805 (Version 1)
Quarter: 2025Q2

REPORT INFORMATION
  Report Type: Spontaneous
  Country: US (occurrence: US)
  Receive Date: 20250411
  Receipt Date: 20250411
  Transmission Date: 20250716
  Serious: Yes (Other)
  Sender: ORGANON
  Company Number: US-009507513-1808USA001631

PATIENT
  Age: 3 Month
  Sex: Female

DRUGS (1)
  1. ELOCON [Suspect]
     Active Substance: MOMETASONE FUROATE
     Indication: Seborrhoeic dermatitis
     Route: 061

REACTIONS (2)
  - Cushing^s syndrome [Unknown]
  - Hypothalamic pituitary adrenal axis suppression [Unknown]
